FAERS Safety Report 18336709 (Version 1)
Quarter: 2020Q4

REPORT INFORMATION
  Report Type: Spontaneous
  Country: US (occurrence: US)
  Receive Date: 20201001
  Receipt Date: 20201001
  Transmission Date: 20210113
  Serious: Yes (Other)
  Sender: FDA-Public Use
  Company Number: US-PURDUE-USA-2020-0168412

PATIENT
  Sex: Female

DRUGS (2)
  1. MS CONTIN [Suspect]
     Active Substance: MORPHINE SULFATE
     Indication: PRODUCT USED FOR UNKNOWN INDICATION
     Dosage: UNK
     Route: 048
  2. OXYCONTIN [Suspect]
     Active Substance: OXYCODONE HYDROCHLORIDE
     Dosage: UNK
     Route: 048
     Dates: start: 200007

REACTIONS (8)
  - Asthenia [Unknown]
  - Gastrooesophageal reflux disease [Unknown]
  - Drug dependence [Unknown]
  - Nausea [Unknown]
  - Somnolence [Unknown]
  - Cognitive disorder [Unknown]
  - Constipation [Unknown]
  - Liver injury [Unknown]
